FAERS Safety Report 5302954-8 (Version None)
Quarter: 2007Q2

REPORT INFORMATION
  Report Type: 
  Country: None (occurrence: None)
  Receive Date: 20070417
  Receipt Date: 20070417
  Transmission Date: 20071010
  Serious: Yes (Life-Threatening)
  Sender: FDA-Public Use
  Company Number: None

PATIENT
  Age: 54 Year
  Sex: Male
  Weight: 83.9154 kg

DRUGS (7)
  1. LUNESTA [Suspect]
     Indication: SLEEP DISORDER
     Dates: start: 20070318, end: 20070329
  2. LAMICTAL [Suspect]
     Indication: BIPOLAR I DISORDER
  3. ACTOS [Concomitant]
  4. METFORMIN HCL [Concomitant]
  5. COZAAR [Concomitant]
  6. LAMICTAL [Concomitant]
  7. ANDROGEL [Concomitant]

REACTIONS (5)
  - AGITATION [None]
  - DEPRESSED MOOD [None]
  - INSOMNIA [None]
  - IRRITABILITY [None]
  - SUICIDAL IDEATION [None]
